FAERS Safety Report 24555579 (Version 1)
Quarter: 2024Q4

REPORT INFORMATION
  Report Type: Spontaneous
  Country: US (occurrence: None)
  Receive Date: 20241025
  Receipt Date: 20241025
  Transmission Date: 20250114
  Serious: Yes (Hospitalization)
  Sender: Public
  Company Number: None

PATIENT
  Age: 66 Year
  Sex: Male

DRUGS (1)
  1. ZELBORAF [Suspect]
     Active Substance: VEMURAFENIB
     Dosage: FREQUENCY : TWICE A DAY;?
     Route: 048
     Dates: start: 20231201

REACTIONS (3)
  - Dehydration [None]
  - Hypophagia [None]
  - Diarrhoea [None]

NARRATIVE: CASE EVENT DATE: 20241024
